FAERS Safety Report 8094814-7 (Version None)
Quarter: 2012Q1

REPORT INFORMATION
  Report Type: 
  Country: None (occurrence: None)
  Receive Date: 20120129
  Receipt Date: 20111212
  Transmission Date: 20120608
  Serious: No
  Sender: FDA-Public Use
  Company Number: US-ABBOTT-11P-163-0882653-00

PATIENT
  Age: 64 Year
  Sex: Female

DRUGS (6)
  1. HUMIRA [Suspect]
     Indication: PSORIASIS
     Dates: start: 20111202
  2. AVALIDE [Concomitant]
     Indication: HYPERTENSION
  3. K+ [Concomitant]
     Indication: MINERAL SUPPLEMENTATION
  4. LEVOXYL [Concomitant]
     Indication: HYPERTENSION
  5. PRAVASTATIN [Concomitant]
     Indication: BLOOD CHOLESTEROL INCREASED
  6. MEFORMIN [Concomitant]
     Indication: DIABETES MELLITUS

REACTIONS (2)
  - LARYNGITIS [None]
  - OROPHARYNGEAL PAIN [None]
